FAERS Safety Report 6751552-8 (Version None)
Quarter: 2010Q2

REPORT INFORMATION
  Report Type: 
  Country: None (occurrence: None)
  Receive Date: 20100602
  Receipt Date: 20100521
  Transmission Date: 20101027
  Serious: Yes (Hospitalization)
  Sender: FDA-Public Use
  Company Number: JP-ROCHE-705912

PATIENT
  Sex: Female

DRUGS (20)
  1. TOCILIZUMAB [Suspect]
     Indication: RHEUMATOID ARTHRITIS
     Dosage: DOSE FORM: INJECTION
     Route: 041
     Dates: start: 20090513, end: 20090513
  2. TOCILIZUMAB [Suspect]
     Route: 041
     Dates: start: 20090610, end: 20090610
  3. TOCILIZUMAB [Suspect]
     Route: 041
     Dates: start: 20090708, end: 20090708
  4. TOCILIZUMAB [Suspect]
     Route: 041
     Dates: start: 20090805, end: 20090805
  5. TOCILIZUMAB [Suspect]
     Route: 041
     Dates: start: 20090902, end: 20090902
  6. TOCILIZUMAB [Suspect]
     Route: 041
     Dates: start: 20091015, end: 20091015
  7. TOCILIZUMAB [Suspect]
     Route: 041
     Dates: start: 20091112, end: 20091112
  8. BREDININ [Concomitant]
     Route: 048
  9. ISONIAZID [Concomitant]
     Route: 048
     Dates: start: 20090318
  10. PREDNISOLONE [Concomitant]
     Route: 048
     Dates: end: 20090804
  11. PREDNISOLONE [Concomitant]
     Route: 048
     Dates: start: 20090805, end: 20090901
  12. PREDNISOLONE [Concomitant]
     Route: 048
     Dates: start: 20090902, end: 20091014
  13. PREDNISOLONE [Concomitant]
     Dosage: DOSE FORM: PERORAL AGENT
     Route: 048
     Dates: start: 20091015
  14. LOXONIN [Concomitant]
     Dosage: DOSE FORM: PERORAL AGENT
     Route: 048
  15. TAKEPRON [Concomitant]
     Dosage: DOSE FORM: PERORAL AGENT
     Route: 048
  16. AMLODIN [Concomitant]
     Dosage: DOSE FORM: PERORAL AGENT
     Route: 048
  17. LIPITOR [Concomitant]
     Route: 048
  18. COTRIM [Concomitant]
     Dosage: DOSE FORM: GRANULATED POWDER
     Route: 048
  19. FOSAMAX [Concomitant]
     Dosage: DRUG NAME: FOSAMAC 35MG
     Route: 048
  20. PYDOXAL [Concomitant]
     Dosage: DOSE FORM: ENTERIC COATING DRUG
     Route: 048

REACTIONS (1)
  - LIP AND/OR ORAL CAVITY CANCER [None]
